FAERS Safety Report 10405887 (Version 1)
Quarter: 2014Q3

REPORT INFORMATION
  Report Type: Spontaneous
  Country: FR (occurrence: FR)
  Receive Date: 20140825
  Receipt Date: 20140825
  Transmission Date: 20150326
  Serious: Yes (Hospitalization)
  Sender: FDA-Public Use
  Company Number: FR-GE HEALTHCARE MEDICAL DIAGNOSTICS-OMPQ-PR-1408S-0979

PATIENT
  Age: 61 Year
  Sex: Female

DRUGS (19)
  1. OMNIPAQUE [Suspect]
     Active Substance: IOHEXOL
     Indication: PRODUCT USED FOR UNKNOWN INDICATION
     Route: 042
     Dates: start: 20140624, end: 20140624
  2. OMNIPAQUE [Suspect]
     Active Substance: IOHEXOL
     Indication: DIAGNOSTIC PROCEDURE
  3. KARDEGIC [Concomitant]
     Active Substance: ASPIRIN LYSINE
  4. IDARUBICIN [Concomitant]
     Active Substance: IDARUBICIN
     Dates: start: 20140614, end: 20140618
  5. CYTARABINE. [Concomitant]
     Active Substance: CYTARABINE
     Dates: start: 20140614, end: 20140620
  6. VANCOMYCINE BASE [Suspect]
     Active Substance: VANCOMYCIN
     Route: 042
     Dates: start: 20140620, end: 20140702
  7. FUROSEMIDE. [Suspect]
     Active Substance: FUROSEMIDE
     Route: 042
     Dates: start: 20140614, end: 20140702
  8. VORICONAZOLE. [Concomitant]
     Active Substance: VORICONAZOLE
     Route: 042
     Dates: start: 20140619, end: 20140702
  9. VORICONAZOLE. [Concomitant]
     Active Substance: VORICONAZOLE
     Route: 048
     Dates: start: 20140702
  10. VANCOMYCINE BASE [Suspect]
     Active Substance: VANCOMYCIN
     Route: 042
     Dates: start: 20140616, end: 20140619
  11. ATORVASTATINE [Concomitant]
     Active Substance: ATORVASTATIN
  12. TELMISARTAN. [Concomitant]
     Active Substance: TELMISARTAN
  13. METFORMIN [Concomitant]
     Active Substance: METFORMIN HYDROCHLORIDE
  14. PIPERACILLIN AND TAZOBACTAM [Concomitant]
     Active Substance: PIPERACILLIN SODIUM\TAZOBACTAM SODIUM
     Dates: start: 20140616
  15. CLINDAMYCIN [Concomitant]
     Active Substance: CLINDAMYCIN\CLINDAMYCIN PHOSPHATE
     Route: 048
     Dates: start: 20140619
  16. AMLODIPINE [Concomitant]
     Active Substance: AMLODIPINE BESYLATE
  17. SERESTA [Concomitant]
     Active Substance: OXAZEPAM
  18. ADANCOR [Concomitant]
     Active Substance: NICORANDIL
  19. VORICONAZOLE. [Concomitant]
     Active Substance: VORICONAZOLE
     Route: 042
     Dates: start: 20140618, end: 20140618

REACTIONS (1)
  - Renal failure acute [Recovering/Resolving]

NARRATIVE: CASE EVENT DATE: 20140630
